FAERS Safety Report 13905508 (Version 5)
Quarter: 2017Q3

REPORT INFORMATION
  Report Type: Report from Study
  Country: US (occurrence: US)
  Receive Date: 20170825
  Receipt Date: 20170921
  Transmission Date: 20171127
  Serious: Yes (Other)
  Sender: FDA-Public Use
  Company Number: US-ROCHE-1983233

PATIENT
  Age: 58 Year
  Sex: Female
  Weight: 55.8 kg

DRUGS (30)
  1. PLACEBO [Suspect]
     Active Substance: UNSPECIFIED INGREDIENT
     Route: 042
     Dates: start: 20120827, end: 20120827
  2. PLACEBO [Suspect]
     Active Substance: UNSPECIFIED INGREDIENT
     Route: 042
     Dates: start: 20130128, end: 20130128
  3. OCRELIZUMAB. [Suspect]
     Active Substance: OCRELIZUMAB
     Dosage: WEEK 96
     Route: 042
     Dates: start: 20160429, end: 20160429
  4. OCRELIZUMAB. [Suspect]
     Active Substance: OCRELIZUMAB
     Dosage: WEEK 120
     Route: 042
     Dates: start: 20161020, end: 20161020
  5. DIPHENHYDRAMINE. [Concomitant]
     Active Substance: DIPHENHYDRAMINE
     Dosage: SAME DOSE ON 27/AUG/2012, 28/JAN/2013, 15/JUL/2013, 03/JAN/2014, 30/JUN/2014, 14/JUL/2014, 15/DEC/20
     Route: 065
     Dates: start: 20120813
  6. METHYLPREDNISOLONE. [Concomitant]
     Active Substance: METHYLPREDNISOLONE
     Dosage: SAME DOSE ON 27/AUG/2012, 28/JAN/2013, 15/JUL/2013, 03/JAN/2014, 30/JUN/2014, 14/JUL/2014, 15/DEC/20
     Route: 065
     Dates: start: 20120813, end: 20120813
  7. DOXYCYCLINE HYCLATE. [Concomitant]
     Active Substance: DOXYCYCLINE HYCLATE
     Route: 065
     Dates: start: 20170802
  8. PLACEBO [Suspect]
     Active Substance: UNSPECIFIED INGREDIENT
     Route: 042
     Dates: start: 20130715, end: 20130715
  9. GABAPENTIN. [Concomitant]
     Active Substance: GABAPENTIN
     Route: 065
     Dates: start: 20170214
  10. MACRODANTIN [Concomitant]
     Active Substance: NITROFURANTOIN
     Route: 065
     Dates: start: 20170508
  11. IBUPROFEN. [Concomitant]
     Active Substance: IBUPROFEN
     Route: 065
     Dates: start: 1999
  12. INTERFERON BETA-1A [Suspect]
     Active Substance: INTERFERON BETA-1A
     Indication: RELAPSING-REMITTING MULTIPLE SCLEROSIS
     Route: 058
     Dates: start: 20120813
  13. OCRELIZUMAB. [Suspect]
     Active Substance: OCRELIZUMAB
     Indication: RELAPSING-REMITTING MULTIPLE SCLEROSIS
     Dosage: WEEK 0.  GIVEN AS DUAL INFUSIONS ON DAYS 1 AND 15 OF THE FIRST 24- WEEK TREATMENT CYCLE FOLLOWED BY
     Route: 042
     Dates: start: 20140630, end: 20140630
  14. VITAMIN D3 [Concomitant]
     Active Substance: CHOLECALCIFEROL
     Route: 065
     Dates: start: 20140103
  15. PLACEBO [Suspect]
     Active Substance: UNSPECIFIED INGREDIENT
     Indication: RELAPSING-REMITTING MULTIPLE SCLEROSIS
     Dosage: GIVEN AS DUAL INFUSIONS ON DAYS 1 AND 15 FOR THE FIRST DOSE AND AS A SINGLE INFUSION FOR ALL SUBSEQU
     Route: 042
     Dates: start: 20120813, end: 20120813
  16. TEMAZEPAM. [Concomitant]
     Active Substance: TEMAZEPAM
     Route: 065
     Dates: start: 20141205, end: 20141208
  17. IBUPROFEN. [Concomitant]
     Active Substance: IBUPROFEN
     Route: 065
     Dates: start: 20170308, end: 20170410
  18. INTERFERON BETA-1A [Suspect]
     Active Substance: INTERFERON BETA-1A
     Dosage: MOST RECENT DOSE PRIOR TO SAE: 30/JUN/2014
     Route: 058
     Dates: start: 20140617
  19. OCRELIZUMAB. [Suspect]
     Active Substance: OCRELIZUMAB
     Dosage: WEEK 144?THIS WAS MOST RECENT DOSE OF OPEN LABEL OCRELIZUMAB PRIOR TO THE ONSET OF THE BASAL CELL CA
     Route: 042
     Dates: start: 20170407, end: 20170407
  20. ACETAMINOPHEN. [Concomitant]
     Active Substance: ACETAMINOPHEN
     Dosage: SAME DOSE ON 27/AUG/2012, 28/JAN/2013, 15/JUL/2013, 03/JAN/2014, 30/JUN/2014, 14/JUL/2014, 15/DEC/20
     Route: 065
     Dates: start: 20120813
  21. PLACEBO [Suspect]
     Active Substance: UNSPECIFIED INGREDIENT
     Route: 042
     Dates: start: 20140103, end: 20140103
  22. OCRELIZUMAB. [Suspect]
     Active Substance: OCRELIZUMAB
     Dosage: WEEK 24
     Route: 042
     Dates: start: 20141215, end: 20141215
  23. OCRELIZUMAB. [Suspect]
     Active Substance: OCRELIZUMAB
     Dosage: WEEK 72
     Route: 042
     Dates: start: 20151123, end: 20151123
  24. HYDROCORTISONE. [Concomitant]
     Active Substance: HYDROCORTISONE
     Route: 065
     Dates: start: 20120924
  25. TEMAZEPAM. [Concomitant]
     Active Substance: TEMAZEPAM
     Route: 065
     Dates: start: 20151019
  26. OCRELIZUMAB. [Suspect]
     Active Substance: OCRELIZUMAB
     Dosage: WEEK 2
     Route: 042
     Dates: start: 20140714, end: 20140714
  27. OCRELIZUMAB. [Suspect]
     Active Substance: OCRELIZUMAB
     Dosage: WEEK 48
     Route: 042
     Dates: start: 20150602, end: 20150602
  28. TUMS [Concomitant]
     Active Substance: CALCIUM CARBONATE
     Route: 065
     Dates: start: 2011, end: 20130613
  29. GABAPENTIN. [Concomitant]
     Active Substance: GABAPENTIN
     Route: 065
     Dates: start: 201612, end: 20170213
  30. GABAPENTIN. [Concomitant]
     Active Substance: GABAPENTIN
     Route: 065
     Dates: start: 20151019, end: 201612

REACTIONS (1)
  - Basal cell carcinoma [Not Recovered/Not Resolved]

NARRATIVE: CASE EVENT DATE: 20170809
